FAERS Safety Report 4939139-0 (Version None)
Quarter: 2006Q1

REPORT INFORMATION
  Report Type: 
  Country: None (occurrence: None)
  Receive Date: 20060306
  Receipt Date: 20060224
  Transmission Date: 20060701
  Serious: Yes (Other)
  Sender: FDA-Public Use
  Company Number: 2006018772

PATIENT
  Age: 60 Year
  Sex: Male

DRUGS (5)
  1. PREGABALIN (PREGABALIN) [Suspect]
     Indication: COMPLEX PARTIAL SEIZURES
     Dosage: 450 MG (450 MG, 1 IN 1 D), ORAL
     Route: 048
     Dates: start: 20051001
  2. ALL OTHER THERAPEUTIC PRODUCTS (ALL OTHER THERAPEUTIC PRODUCTS) [Concomitant]
  3. TEGRETOL [Concomitant]
  4. ACETAZOLAMIDE [Concomitant]
  5. TIAGABINE HCL [Concomitant]

REACTIONS (1)
  - MYOCLONUS [None]
